FAERS Safety Report 10781288 (Version 1)
Quarter: 2015Q1

REPORT INFORMATION
  Report Type: Spontaneous
  Country: US (occurrence: None)
  Receive Date: 20150209
  Receipt Date: 20150209
  Transmission Date: 20150721
  Serious: Yes (Death)
  Sender: FDA-Public Use
  Company Number: None

PATIENT
  Age: 69 Year
  Sex: Male

DRUGS (13)
  1. LETAIRIS [Suspect]
     Active Substance: AMBRISENTAN
     Indication: HEART DISEASE CONGENITAL
     Route: 048
     Dates: start: 201406, end: 201501
  2. PANTOPRAZOLE (PROTONIX) [Concomitant]
  3. SPIRONOLACTONE 9ALDACTONE) [Concomitant]
  4. SILDENAFIL. [Concomitant]
     Active Substance: SILDENAFIL
  5. LACTULOSE. [Concomitant]
     Active Substance: LACTULOSE
  6. FUROSEMIDE (LASIX) [Concomitant]
  7. FLOMAX [Concomitant]
     Active Substance: TAMSULOSIN HYDROCHLORIDE
  8. ZOLOFT [Concomitant]
     Active Substance: SERTRALINE HYDROCHLORIDE
  9. REVATIO [Concomitant]
     Active Substance: SILDENAFIL CITRATE
  10. MOMETASONE-FORMOTEROL (DULERA) [Concomitant]
  11. ALBUTEROL (PROAIR HFA) [Concomitant]
  12. FLUTICASONE (FLONASE) [Concomitant]
  13. TRAZODONE (DESYREL) [Concomitant]

REACTIONS (11)
  - Chest pain [None]
  - Respiratory failure [None]
  - Acute respiratory distress syndrome [None]
  - Hypercapnia [None]
  - Back pain [None]
  - Troponin increased [None]
  - Encephalopathy [None]
  - Multi-organ failure [None]
  - Neurological decompensation [None]
  - Spinal compression fracture [None]
  - Hepatic failure [None]

NARRATIVE: CASE EVENT DATE: 20150129
